FAERS Safety Report 4322771-5 (Version None)
Quarter: 2004Q1

REPORT INFORMATION
  Report Type: 
  Country: None (occurrence: None)
  Receive Date: 20040324
  Receipt Date: 20030103
  Transmission Date: 20041129
  Serious: Yes (Other)
  Sender: FDA-Public Use
  Company Number: US-ROCHE-328705

PATIENT
  Age: 13 Year
  Sex: Female

DRUGS (1)
  1. ACCUTANE [Suspect]
     Indication: ACNE
     Route: 048
     Dates: start: 19961115, end: 19970115

REACTIONS (9)
  - AGGRESSION [None]
  - DEPRESSION [None]
  - DRUG INEFFECTIVE [None]
  - HIRSUTISM [None]
  - PRURITUS [None]
  - RASH [None]
  - SUICIDAL IDEATION [None]
  - SUICIDE ATTEMPT [None]
  - VERBAL ABUSE [None]
